FAERS Safety Report 10060547 (Version 3)
Quarter: 2014Q3

REPORT INFORMATION
  Report Type: Report from Study
  Country: MX (occurrence: MX)
  Receive Date: 20140404
  Receipt Date: 20140708
  Transmission Date: 20150326
  Serious: Yes (Other)
  Sender: FDA-Public Use
  Company Number: PHHO2014MX002712

PATIENT

DRUGS (11)
  1. METOPROLOL [Concomitant]
     Active Substance: METOPROLOL
     Indication: HYPERTENSION
     Dosage: 100 MG, BID
     Route: 048
     Dates: start: 20130916
  2. METFORMIN [Concomitant]
     Active Substance: METFORMIN HYDROCHLORIDE
     Dosage: 850 MG, TID
     Route: 048
     Dates: start: 20110713
  3. AMIODARONE [Concomitant]
     Active Substance: AMIODARONE
     Indication: PROCEDURAL SITE REACTION
     Dosage: 500 MG, UNK
     Dates: start: 20130314
  4. ENALAPRIL [Concomitant]
     Active Substance: ENALAPRIL
     Indication: HYPERTENSION
     Dosage: 20 MG, BID
     Route: 048
     Dates: start: 20130125
  5. CEFTRIAXONE. [Concomitant]
     Active Substance: CEFTRIAXONE
     Indication: PROCEDURAL SITE REACTION
     Dosage: 2 MG, UNK
     Dates: start: 20130314
  6. SOM230 [Suspect]
     Active Substance: PASIREOTIDE
     Indication: ACROMEGALY
     Dosage: 900 UG, BID (CORE)
     Route: 058
     Dates: start: 20090107, end: 20090701
  7. GLIBENCLAMIDE [Concomitant]
     Active Substance: GLYBURIDE
     Indication: DIABETES MELLITUS
     Dosage: 5 MG, BID
     Route: 048
     Dates: start: 20121226
  8. LINAGLIPTIN [Concomitant]
     Active Substance: LINAGLIPTIN
     Indication: DIABETES MELLITUS
     Dosage: 2.5 MG, QD
     Route: 048
  9. METRONIDAZOLE. [Concomitant]
     Active Substance: METRONIDAZOLE
     Indication: PROCEDURAL SITE REACTION
     Dosage: 500 MG, BID
     Dates: start: 20130314
  10. NIFEDIPINE. [Concomitant]
     Active Substance: NIFEDIPINE
     Indication: HYPERTENSION
     Dosage: 30 MG, BID
     Route: 048
     Dates: start: 20130125
  11. SOM230 [Suspect]
     Active Substance: PASIREOTIDE
     Dosage: 900 UG, BID (EXTENSION)
     Route: 058
     Dates: start: 20091229

REACTIONS (2)
  - Hyperglycaemia [Unknown]
  - Ankle fracture [Unknown]

NARRATIVE: CASE EVENT DATE: 20140214
